FAERS Safety Report 6464192-5 (Version None)
Quarter: 2009Q4

REPORT INFORMATION
  Report Type: 
  Country: None (occurrence: None)
  Receive Date: 20091201
  Receipt Date: 20091119
  Transmission Date: 20100525
  Serious: Yes (Hospitalization)
  Sender: FDA-Public Use
  Company Number: PHHY2009ES42006

PATIENT
  Age: 71 Year
  Sex: Male

DRUGS (1)
  1. TASIGNA [Suspect]
     Indication: CHRONIC MYELOID LEUKAEMIA
     Dosage: UNK
     Dates: start: 20090601

REACTIONS (5)
  - ANGIOPLASTY [None]
  - CONCOMITANT DISEASE AGGRAVATED [None]
  - MYOCARDIAL INFARCTION [None]
  - MYOCARDIAL ISCHAEMIA [None]
  - THROMBOCYTOPENIA [None]
